FAERS Safety Report 6298204-9 (Version None)
Quarter: 2009Q3

REPORT INFORMATION
  Report Type: 
  Country: None (occurrence: None)
  Receive Date: 20090805
  Receipt Date: 20090730
  Transmission Date: 20100115
  Serious: Yes (Hospitalization)
  Sender: FDA-Public Use
  Company Number: JP-BRISTOL-MYERS SQUIBB COMPANY-14725550

PATIENT
  Age: 75 Year
  Sex: Male

DRUGS (2)
  1. PACLITAXEL [Suspect]
     Indication: GASTRIC CANCER
     Dosage: 96 MG - 29JAN09-29JAN09; 72MG - 24JUL09-24JUL09
     Dates: start: 20090129
  2. LAPATINIB [Suspect]
     Indication: GASTRIC CANCER

REACTIONS (1)
  - HYPOTHYROIDISM [None]
